FAERS Safety Report 6031747-1 (Version None)
Quarter: 2008Q4

REPORT INFORMATION
  Report Type: 
  Country: None (occurrence: None)
  Receive Date: 20081224
  Receipt Date: 20081015
  Transmission Date: 20090506
  Serious: No
  Sender: FDA-Public Use
  Company Number: 2008PV036926

PATIENT
  Age: 65 Year
  Sex: Male

DRUGS (18)
  1. SYMLIN [Suspect]
     Indication: TYPE 2 DIABETES MELLITUS
     Dosage: 120 MCG;BID;SC; 60 MCG;BID;SC
     Route: 058
     Dates: start: 20080905, end: 20080901
  2. SYMLIN [Suspect]
     Indication: TYPE 2 DIABETES MELLITUS
     Dosage: 120 MCG;BID;SC; 60 MCG;BID;SC
     Route: 058
     Dates: start: 20080901
  3. GLUCOTROL XL [Concomitant]
  4. BUMEX [Concomitant]
  5. ALLOPURINOL [Concomitant]
  6. PROTONIX [Concomitant]
  7. LIPITOR [Concomitant]
  8. METOPROLOL [Concomitant]
  9. LYRICA [Concomitant]
  10. SYNTHROID [Concomitant]
  11. MECLIZINE [Concomitant]
  12. ASPIRIN [Concomitant]
  13. MAGNESIUM OXIDE [Concomitant]
  14. ALBUTEROL [Concomitant]
  15. FLOVENT [Concomitant]
  16. FERROUS SULPHATE [Concomitant]
  17. LANTUS [Concomitant]
  18. NOVOLOG [Concomitant]

REACTIONS (3)
  - BLOOD GLUCOSE INCREASED [None]
  - FATIGUE [None]
  - HALLUCINATION, VISUAL [None]
